FAERS Safety Report 20942963 (Version 4)
Quarter: 2025Q2

REPORT INFORMATION
  Report Type: Report from Study
  Country: US (occurrence: US)
  Receive Date: 20220610
  Receipt Date: 20250408
  Transmission Date: 20250717
  Serious: Yes (Other)
  Sender: ROCHE
  Company Number: US-ROCHE-3113268

PATIENT
  Age: 70 Year
  Sex: Female
  Weight: 38.56 kg

DRUGS (2)
  1. NUTROPIN [Suspect]
     Active Substance: SOMATROPIN
     Indication: Hypopituitarism
     Dosage: EVERY DAY
     Route: 050
  2. PROVIGIL [Concomitant]
     Active Substance: MODAFINIL

REACTIONS (9)
  - Somnolence [Unknown]
  - Multiple injuries [Unknown]
  - Hypersomnia [Unknown]
  - Amnesia [Unknown]
  - Haemorrhage [Unknown]
  - Colitis microscopic [Unknown]
  - Product prescribing error [Unknown]
  - Product storage error [Unknown]
  - Loss of consciousness [Unknown]

NARRATIVE: CASE EVENT DATE: 20170101
